FAERS Safety Report 17074382 (Version 1)
Quarter: 2019Q4

REPORT INFORMATION
  Report Type: Spontaneous
  Country: GB (occurrence: GB)
  Receive Date: 20191126
  Receipt Date: 20191126
  Transmission Date: 20200122
  Serious: Yes (Other)
  Sender: FDA-Public Use
  Company Number: GB-TEVA-2019-GB-1141077

PATIENT
  Age: 40 Year
  Sex: Male
  Weight: 80 kg

DRUGS (5)
  1. VITAMIN D [Concomitant]
     Active Substance: VITAMIN D NOS
  2. RISPERIDONE. [Suspect]
     Active Substance: RISPERIDONE
     Indication: SCHIZOAFFECTIVE DISORDER
     Dosage: 1.5 MG
     Route: 048
     Dates: start: 2009
  3. AMIAS [Suspect]
     Active Substance: CANDESARTAN CILEXETIL
     Dosage: 16 MG
     Route: 048
     Dates: start: 2016
  4. LERCANIDIPINE [Suspect]
     Active Substance: LERCANIDIPINE
     Indication: HYPERTENSION
     Dosage: 10 MG
     Route: 048
     Dates: start: 2019
  5. OMEGA-3 FISH OIL [Concomitant]
     Active Substance: FISH OIL\OMEGA-3 FATTY ACIDS

REACTIONS (1)
  - Testicular pain [Not Recovered/Not Resolved]

NARRATIVE: CASE EVENT DATE: 2019
